FAERS Safety Report 8138977-3 (Version None)
Quarter: 2012Q1

REPORT INFORMATION
  Report Type: 
  Country: None (occurrence: None)
  Receive Date: 20120215
  Receipt Date: 20120203
  Transmission Date: 20120608
  Serious: Yes (Other)
  Sender: FDA-Public Use
  Company Number: FR-JNJFOC-20120207048

PATIENT
  Age: 32 Year
  Sex: Female

DRUGS (11)
  1. REMICADE [Suspect]
     Route: 042
     Dates: start: 20080208
  2. IRON [Concomitant]
     Dates: start: 20080912, end: 20081015
  3. REMICADE [Suspect]
     Indication: CROHN'S DISEASE
     Route: 042
     Dates: start: 20100326
  4. REMICADE [Suspect]
     Route: 042
     Dates: start: 20080325
  5. REMICADE [Suspect]
     Route: 042
     Dates: start: 20071221
  6. REMICADE [Suspect]
     Route: 042
     Dates: start: 20100204
  7. REMICADE [Suspect]
     Route: 042
     Dates: start: 20100514
  8. IRON [Concomitant]
     Dates: start: 20071026, end: 20080325
  9. IRON [Concomitant]
     Dates: start: 20100611, end: 20100611
  10. REMICADE [Suspect]
     Route: 042
     Dates: start: 20100723
  11. IRON [Concomitant]
     Indication: ANAEMIA
     Dates: start: 20100723, end: 20100723

REACTIONS (2)
  - MATERNAL EXPOSURE DURING PREGNANCY [None]
  - PREMATURE LABOUR [None]
